FAERS Safety Report 5306183-3 (Version None)
Quarter: 2007Q2

REPORT INFORMATION
  Report Type: 
  Country: None (occurrence: None)
  Receive Date: 20070416
  Receipt Date: 20070402
  Transmission Date: 20071010
  Serious: Yes (Other)
  Sender: FDA-Public Use
  Company Number: 2007RR-06704

PATIENT
  Age: 20 Year
  Sex: Male

DRUGS (1)
  1. PIPLEX (ISOTRETINOIN) [Suspect]
     Indication: ACNE
     Dosage: 20 MG, QD

REACTIONS (1)
  - PANIC ATTACK [None]
